FAERS Safety Report 9347429 (Version 1)
Quarter: 2013Q2

REPORT INFORMATION
  Report Type: Spontaneous
  Country: IT (occurrence: IT)
  Receive Date: 20130613
  Receipt Date: 20130613
  Transmission Date: 20140414
  Serious: Yes (Hospitalization)
  Sender: FDA-Public Use
  Company Number: IT-ABBOTT-13X-083-1102814-00

PATIENT
  Age: 52 Year
  Sex: Male

DRUGS (8)
  1. KLACID [Suspect]
     Indication: OROPHARYNGEAL PAIN
     Route: 048
     Dates: start: 20130509, end: 20130509
  2. TACHIDOL [Suspect]
     Indication: OROPHARYNGEAL PAIN
     Dosage: FORM STRENGHT: 500 MG/30 MG
     Route: 048
     Dates: start: 20130509, end: 20130509
  3. ACIDO ACETILSALICILICO [Concomitant]
     Indication: PRODUCT USED FOR UNKNOWN INDICATION
  4. PLAUNAZIDE [Concomitant]
     Indication: PRODUCT USED FOR UNKNOWN INDICATION
  5. TORVAST [Concomitant]
     Indication: PRODUCT USED FOR UNKNOWN INDICATION
  6. ESAPENT [Concomitant]
     Indication: PRODUCT USED FOR UNKNOWN INDICATION
  7. ZYLORIC [Concomitant]
     Indication: PRODUCT USED FOR UNKNOWN INDICATION
  8. TRIATEC [Concomitant]
     Indication: PRODUCT USED FOR UNKNOWN INDICATION

REACTIONS (3)
  - Presyncope [Recovering/Resolving]
  - Abdominal pain upper [Recovering/Resolving]
  - Tremor [Recovering/Resolving]
